FAERS Safety Report 7963111-X (Version None)
Quarter: 2011Q4

REPORT INFORMATION
  Report Type: 
  Country: None (occurrence: None)
  Receive Date: 20111207
  Receipt Date: 20111128
  Transmission Date: 20120403
  Serious: Yes (Death)
  Sender: FDA-Public Use
  Company Number: JP-ROCHE-1006138

PATIENT
  Sex: Female

DRUGS (7)
  1. PREDNISOLONE [Concomitant]
     Route: 048
  2. FAMOTIDINE [Concomitant]
     Indication: PROPHYLAXIS
     Route: 048
  3. ACTEMRA [Suspect]
     Indication: RHEUMATOID ARTHRITIS
     Route: 041
     Dates: start: 20080924, end: 20090119
  4. ACTEMRA [Suspect]
     Route: 041
     Dates: start: 20090603, end: 20091028
  5. PREDNISOLONE [Concomitant]
     Indication: RHEUMATOID ARTHRITIS
     Route: 048
  6. ACTEMRA [Suspect]
     Route: 041
     Dates: start: 20090304, end: 20090415
  7. LIPITOR [Concomitant]
     Indication: HYPERLIPIDAEMIA
     Route: 048

REACTIONS (3)
  - MULTI-ORGAN FAILURE [None]
  - COLON CANCER [None]
  - METASTASES TO LIVER [None]
